FAERS Safety Report 9684200 (Version 2)
Quarter: 2013Q4

REPORT INFORMATION
  Report Type: Report from Study
  Country: FR (occurrence: FR)
  Receive Date: 20131112
  Receipt Date: 20131112
  Transmission Date: 20140711
  Serious: Yes (Hospitalization, Other)
  Sender: FDA-Public Use
  Company Number: FR-ABBVIE-12P-056-0899967-03

PATIENT
  Age: 32 Year
  Sex: Female
  Weight: 44 kg

DRUGS (20)
  1. HUMIRA [Suspect]
     Indication: CROHN^S DISEASE
     Dosage: BASELINE
     Route: 058
     Dates: start: 20090312, end: 20090312
  2. HUMIRA [Suspect]
     Dosage: WEEK 2
     Route: 058
  3. HUMIRA [Suspect]
     Route: 058
  4. HUMIRA [Suspect]
     Route: 058
     Dates: start: 20100709, end: 20100709
  5. HUMIRA [Suspect]
     Route: 058
     Dates: start: 20100723, end: 20100723
  6. HUMIRA [Suspect]
     Route: 058
     Dates: start: 20100806
  7. HUMIRA [Suspect]
     Route: 058
     Dates: start: 20100917, end: 20110601
  8. KARBIVEN [Concomitant]
     Indication: PARENTERAL NUTRITION
     Dates: start: 20110620, end: 20110720
  9. CERNEVIT [Concomitant]
     Indication: VITAMIN SUPPLEMENTATION
     Dosage: 2 BOTTLES
     Dates: start: 20110620, end: 20110720
  10. SOMATULINE [Concomitant]
     Indication: HYPERCHLORHYDRIA
     Dates: start: 20110620, end: 20110720
  11. NICORETTE [Concomitant]
     Indication: EX-TOBACCO USER
     Dates: start: 20110620
  12. MYOLASTAN [Concomitant]
     Indication: MUSCLE RELAXANT THERAPY
     Dates: start: 20110620, end: 20110720
  13. PARACETAMOL [Concomitant]
     Indication: PAIN
     Dates: start: 20110620, end: 20110720
  14. SPASFON [Concomitant]
     Indication: ABDOMINAL PAIN
     Dates: start: 20100408
  15. TRAMADOL HYDROCHLORIDE [Concomitant]
     Indication: PAIN
     Dates: start: 20110620, end: 20110720
  16. TRAMADOL HYDROCHLORIDE [Concomitant]
     Indication: ABDOMINAL PAIN
     Dates: start: 20100508
  17. TINZAPARIN SODIUM [Concomitant]
     Indication: THROMBOSIS PROPHYLAXIS
     Dates: start: 20110620, end: 20110630
  18. MORPHINE SULFATE [Concomitant]
     Indication: PAIN
     Dates: start: 20110625, end: 20110724
  19. AUGMENTIN [Concomitant]
     Indication: ANTIBIOTIC THERAPY
     Dates: start: 20110710, end: 20110725
  20. OFLOXACIN [Concomitant]
     Indication: ANTIBIOTIC THERAPY
     Dates: start: 20110710, end: 20110724

REACTIONS (2)
  - Staphylococcal sepsis [Recovered/Resolved]
  - Enterocutaneous fistula [Recovered/Resolved]
